FAERS Safety Report 9698971 (Version 2)
Quarter: 2014Q1

REPORT INFORMATION
  Report Type: Spontaneous
  Country: FR (occurrence: FR)
  Receive Date: 20131120
  Receipt Date: 20140306
  Transmission Date: 20141002
  Serious: Yes (Death, Life-Threatening, Hospitalization, Other)
  Sender: FDA-Public Use
  Company Number: FR-ELI_LILLY_AND_COMPANY-FR201311005402

PATIENT
  Sex: Male
  Weight: 74 kg

DRUGS (10)
  1. ALIMTA [Suspect]
     Indication: NON-SMALL CELL LUNG CANCER
     Dosage: 930 MG, CYCLICAL
     Route: 042
     Dates: start: 20130821
  2. ALIMTA [Suspect]
     Indication: MESOTHELIOMA
     Dosage: 736 MG, CYCLICAL
     Route: 042
     Dates: start: 20130917, end: 20131023
  3. CARBOPLATINE [Concomitant]
     Indication: NON-SMALL CELL LUNG CANCER
     Dosage: UNK UNK, UNKNOWN
     Route: 042
     Dates: start: 20130821, end: 20130821
  4. CARBOPLATINE [Concomitant]
     Indication: MESOTHELIOMA
  5. DEXAMETHASONE [Concomitant]
     Indication: PREMEDICATION
  6. FOLIC ACID [Concomitant]
     Indication: PREMEDICATION
  7. VITAMIN B12                        /00056201/ [Concomitant]
     Indication: PREMEDICATION
  8. OXYCONTIN [Concomitant]
     Indication: PAIN
     Dosage: 20 MG, UNKNOWN
     Route: 048
  9. OXYNORM [Concomitant]
     Indication: PAIN
     Dosage: 5 MG, UNK
     Route: 048
  10. PERINDOPRIL [Concomitant]
     Indication: PRODUCT USED FOR UNKNOWN INDICATION

REACTIONS (9)
  - Cardiac failure [Fatal]
  - Respiratory failure [Fatal]
  - Bone marrow failure [Fatal]
  - Pancytopenia [Not Recovered/Not Resolved]
  - Respiratory distress [Unknown]
  - Haematotoxicity [Unknown]
  - Hypotension [Unknown]
  - Neutropenia [Unknown]
  - Off label use [Unknown]
